FAERS Safety Report 5587225-7 (Version None)
Quarter: 2008Q1

REPORT INFORMATION
  Report Type: 
  Country: None (occurrence: None)
  Receive Date: 20080110
  Receipt Date: 20071011
  Transmission Date: 20080703
  Serious: No
  Sender: FDA-Public Use
  Company Number: US-BRISTOL-MYERS SQUIBB COMPANY-13938188

PATIENT
  Age: 45 Year
  Sex: Female
  Weight: 65 kg

DRUGS (9)
  1. CARDIOLITE [Suspect]
     Indication: CARDIAC STRESS TEST
  2. COUMADIN [Concomitant]
  3. ALLEGRA [Concomitant]
  4. FLONASE [Concomitant]
  5. CARAFATE [Concomitant]
  6. PROGRAF [Concomitant]
  7. ACYCLOVIR [Concomitant]
  8. TYLENOL [Concomitant]
  9. REMICADE [Concomitant]

REACTIONS (1)
  - DYSGEUSIA [None]
